FAERS Safety Report 8618159-9 (Version None)
Quarter: 2012Q3

REPORT INFORMATION
  Report Type: 
  Country: None (occurrence: None)
  Receive Date: 20120824
  Receipt Date: 20120316
  Transmission Date: 20120928
  Serious: Yes (Other)
  Sender: FDA-Public Use
  Company Number: US-ASTRAZENECA-2012SE18460

PATIENT
  Age: 77 Year
  Sex: Female
  Weight: 56.2 kg

DRUGS (3)
  1. SYMBICORT [Suspect]
     Dosage: 2 PUFFS TWO TIMES A DAY
     Route: 055
     Dates: end: 20120201
  2. SPIRIVA [Concomitant]
  3. SYMBICORT [Suspect]
     Dosage: 2 PUFFS ONCE DAILY
     Route: 055

REACTIONS (9)
  - HYPERSENSITIVITY [None]
  - DISCOMFORT [None]
  - NASAL CONGESTION [None]
  - HYPOAESTHESIA [None]
  - VASODILATATION [None]
  - PAIN [None]
  - SKIN BURNING SENSATION [None]
  - RASH [None]
  - ORAL CANDIDIASIS [None]
